FAERS Safety Report 7833256-3 (Version None)
Quarter: 2011Q4

REPORT INFORMATION
  Report Type: 
  Country: None (occurrence: None)
  Receive Date: 20111024
  Receipt Date: 20111017
  Transmission Date: 20120403
  Serious: Yes (Other)
  Sender: FDA-Public Use
  Company Number: US-JNJFOC-20111008810

PATIENT
  Sex: Male
  Weight: 92.99 kg

DRUGS (6)
  1. TRAZODONE HYDROCHLORIDE [Concomitant]
     Indication: SLEEP DISORDER
     Dosage: 10MG/100 MG DAILY
     Route: 048
  2. PRISTIQ [Suspect]
     Indication: DEPRESSION
     Route: 048
     Dates: end: 20110101
  3. FENTANYL-100 [Suspect]
     Indication: PAIN
     Dosage: NDC#0781-7244
     Route: 062
     Dates: start: 20110101
  4. LORAZEPAM [Concomitant]
     Indication: ANXIETY
     Route: 048
  5. METHADONE HCL [Concomitant]
     Indication: PAIN
     Route: 048
  6. LISINOPRIL AND HYDROCHLOROTHIAZIDE [Concomitant]
     Indication: HYPERTENSION
     Dosage: 20/25 MG DAILY
     Route: 048

REACTIONS (6)
  - INAPPROPRIATE SCHEDULE OF DRUG ADMINISTRATION [None]
  - APPLICATION SITE EROSION [None]
  - DEPRESSION [None]
  - PRODUCT ADHESION ISSUE [None]
  - WITHDRAWAL SYNDROME [None]
  - PRODUCT QUALITY ISSUE [None]
